FAERS Safety Report 17968871 (Version 1)
Quarter: 2020Q3

REPORT INFORMATION
  Report Type: Spontaneous
  Country: CH (occurrence: CH)
  Receive Date: 20200701
  Receipt Date: 20200701
  Transmission Date: 20201103
  Serious: Yes (Other)
  Sender: FDA-Public Use
  Company Number: CH-009507513-2006CHE003532

PATIENT
  Sex: Female

DRUGS (5)
  1. JANUMET XR [Suspect]
     Active Substance: METFORMIN HYDROCHLORIDE\SITAGLIPTIN PHOSPHATE
     Dosage: 50/1000 (UNITS NOT PROVIDED) ONCE DAY
     Route: 048
     Dates: start: 2020
  2. COVERAM [Concomitant]
     Active Substance: AMLODIPINE\PERINDOPRIL
     Dosage: 5/5 (UNITS NOT PROVIDED)
  3. PENTASA [Concomitant]
     Active Substance: MESALAMINE
  4. JANUMET XR [Suspect]
     Active Substance: METFORMIN HYDROCHLORIDE\SITAGLIPTIN PHOSPHATE
     Dosage: STRENGTH: 50/500 (UNIT NOT PROVIDED)
     Route: 048
     Dates: start: 20200406
  5. DIBASE [Concomitant]
     Active Substance: CHOLECALCIFEROL

REACTIONS (3)
  - Anger [Unknown]
  - Colitis ulcerative [Unknown]
  - Product residue present [Unknown]

NARRATIVE: CASE EVENT DATE: 2020
